FAERS Safety Report 7396315-8 (Version None)
Quarter: 2011Q1

REPORT INFORMATION
  Report Type: 
  Country: None (occurrence: None)
  Receive Date: 20110325
  Receipt Date: 20110222
  Transmission Date: 20110831
  Serious: Yes (Other)
  Sender: FDA-Public Use
  Company Number: 201110159

PATIENT
  Sex: Male

DRUGS (2)
  1. LIORESAL [Suspect]
     Indication: MUSCLE SPASTICITY
     Dosage: MCG, DAILY, INTRATHECAL
  2. SUFENTANIL [Concomitant]

REACTIONS (4)
  - ABDOMINAL INJURY [None]
  - DEVICE MALFUNCTION [None]
  - UNDERDOSE [None]
  - IMPLANT SITE HAEMATOMA [None]
